FAERS Safety Report 5948625-6 (Version None)
Quarter: 2008Q4

REPORT INFORMATION
  Report Type: 
  Country: None (occurrence: None)
  Receive Date: 20081111
  Receipt Date: 20081031
  Transmission Date: 20090506
  Serious: Yes (Hospitalization, Disabling, Other)
  Sender: FDA-Public Use
  Company Number: US-MERCK-0805USA06571

PATIENT
  Age: 63 Year
  Sex: Female
  Weight: 52 kg

DRUGS (6)
  1. FOSAMAX [Suspect]
     Indication: OSTEOPOROSIS
     Route: 048
     Dates: start: 20010101, end: 20060101
  2. FOSAMAX [Suspect]
     Indication: RHEUMATOID ARTHRITIS
     Route: 048
     Dates: start: 20010101, end: 20060101
  3. [THERAPY UNSPECIFIED] [Concomitant]
     Indication: RHEUMATOID ARTHRITIS
     Route: 065
     Dates: start: 20010401, end: 20060501
  4. LEVOTHYROXINE SODIUM [Concomitant]
     Indication: THYROIDECTOMY
     Route: 065
     Dates: start: 19580101
  5. CYANOCOBALAMIN [Concomitant]
     Indication: PERNICIOUS ANAEMIA
     Route: 065
     Dates: start: 19940101
  6. CORTICOSTEROIDS (UNSPECIFIED) [Concomitant]
     Route: 065
     Dates: start: 19980101

REACTIONS (27)
  - ANAEMIA [None]
  - ANXIETY [None]
  - ARTHROPOD BITE [None]
  - ATROPHY [None]
  - CHEST PAIN [None]
  - DEPRESSION [None]
  - EDENTULOUS [None]
  - FEMORAL NECK FRACTURE [None]
  - FIBROSIS [None]
  - FISTULA DISCHARGE [None]
  - GASTRITIS ATROPHIC [None]
  - HIATUS HERNIA [None]
  - HIP ARTHROPLASTY [None]
  - HYPOAESTHESIA [None]
  - IMPAIRED HEALING [None]
  - INFLAMMATION [None]
  - JAW DISORDER [None]
  - JAW FRACTURE [None]
  - ORAL INFECTION [None]
  - OSTEOARTHRITIS [None]
  - OSTEOMYELITIS [None]
  - OSTEONECROSIS [None]
  - PLEURAL EFFUSION [None]
  - POLYP [None]
  - PRIMARY SEQUESTRUM [None]
  - SUBCUTANEOUS ABSCESS [None]
  - SWELLING [None]
